FAERS Safety Report 4657205-4 (Version None)
Quarter: 2005Q2

REPORT INFORMATION
  Report Type: 
  Country: None (occurrence: None)
  Receive Date: 20050506
  Receipt Date: 20050425
  Transmission Date: 20051028
  Serious: Yes (Hospitalization)
  Sender: FDA-Public Use
  Company Number: 2005045196

PATIENT
  Age: 68 Year
  Sex: Male
  Weight: 74.8435 kg

DRUGS (1)
  1. DETROL LA [Suspect]
     Indication: HYPERTONIC BLADDER
     Dosage: 4 MG (4 MG, 1 IN 1 D),ORAL
     Route: 048
     Dates: start: 20020101

REACTIONS (5)
  - DRY MOUTH [None]
  - HEART VALVE REPLACEMENT [None]
  - MICTURITION URGENCY [None]
  - OESOPHAGEAL DISORDER [None]
  - PHARMACEUTICAL PRODUCT COMPLAINT [None]
